FAERS Safety Report 22302391 (Version 1)
Quarter: 2023Q2

REPORT INFORMATION
  Report Type: Report from Study
  Country: BR (occurrence: BR)
  Receive Date: 20230510
  Receipt Date: 20230510
  Transmission Date: 20230722
  Serious: Yes (Death, Hospitalization, Other)
  Sender: FDA-Public Use
  Company Number: BR-AMGEN-BRASL2023013334

PATIENT
  Age: 84 Year
  Sex: Male

DRUGS (2)
  1. VECTIBIX [Suspect]
     Active Substance: PANITUMUMAB
     Indication: Intestinal metastasis
     Dosage: UNK, EVERY 15 DAYS
     Route: 042
     Dates: start: 20221110
  2. VECTIBIX [Suspect]
     Active Substance: PANITUMUMAB
     Indication: Metastases to liver

REACTIONS (10)
  - Cerebrovascular accident [Fatal]
  - Eye inflammation [Recovering/Resolving]
  - Purpura [Recovering/Resolving]
  - Dermatitis [Recovering/Resolving]
  - Stomatitis [Recovering/Resolving]
  - Skin haemorrhage [Not Recovered/Not Resolved]
  - Macule [Not Recovered/Not Resolved]
  - Sensitive skin [Not Recovered/Not Resolved]
  - Skin atrophy [Not Recovered/Not Resolved]
  - Muscular weakness [Recovering/Resolving]
